FAERS Safety Report 4359138-X (Version None)
Quarter: 2004Q2

REPORT INFORMATION
  Report Type: 
  Country: None (occurrence: None)
  Receive Date: 20040512
  Receipt Date: 20040428
  Transmission Date: 20050107
  Serious: Yes (Hospitalization, Disabling)
  Sender: FDA-Public Use
  Company Number: 2004CG00751

PATIENT
  Age: 51 Year
  Sex: Female
  Weight: 44 kg

DRUGS (10)
  1. IRESSA [Suspect]
     Indication: LUNG NEOPLASM MALIGNANT
     Dosage: 250 MG DAILY PO
     Route: 048
     Dates: start: 20040402, end: 20040416
  2. IRESSA [Suspect]
     Indication: LUNG NEOPLASM MALIGNANT
     Dosage: 250 MG DAILY PO
     Route: 048
     Dates: start: 20040428
  3. DOCETAXEL [Suspect]
     Indication: LUNG NEOPLASM MALIGNANT
     Dates: start: 20040402
  4. MOPRAL [Concomitant]
  5. ISOPTIN TAB [Concomitant]
  6. PLAVIX [Concomitant]
  7. ELISOR [Concomitant]
  8. ZOPHREN [Concomitant]
  9. SOLUPRED [Concomitant]
  10. SOLU-MEDROL [Concomitant]

REACTIONS (6)
  - BRONCHITIS [None]
  - C-REACTIVE PROTEIN INCREASED [None]
  - LUNG NEOPLASM [None]
  - NEOPLASM PROGRESSION [None]
  - NON-SMALL CELL LUNG CANCER [None]
  - WHITE BLOOD CELL COUNT DECREASED [None]
